FAERS Safety Report 10740383 (Version 1)
Quarter: 2015Q1

REPORT INFORMATION
  Report Type: Spontaneous
  Country: US (occurrence: US)
  Receive Date: 20150127
  Receipt Date: 20150127
  Transmission Date: 20150721
  Serious: Yes (Hospitalization)
  Sender: FDA-Public Use
  Company Number: US-JNJFOC-20150109267

PATIENT
  Age: 24 Year
  Sex: Female

DRUGS (5)
  1. BENADRYL [Suspect]
     Active Substance: DIPHENHYDRAMINE HYDROCHLORIDE
     Indication: ERYTHEMA
     Route: 065
     Dates: start: 20051228
  2. PEPCID [Suspect]
     Active Substance: FAMOTIDINE
     Route: 065
  3. SOLU-MEDROL [Suspect]
     Active Substance: METHYLPREDNISOLONE SODIUM SUCCINATE
     Indication: ERYTHEMA
     Route: 065
     Dates: start: 20051228
  4. ACETADOTE [Concomitant]
     Active Substance: ACETYLCYSTEINE
     Indication: TOXICITY TO VARIOUS AGENTS
     Route: 042
  5. PEPCID [Suspect]
     Active Substance: FAMOTIDINE
     Indication: ERYTHEMA
     Route: 065
     Dates: start: 20051228

REACTIONS (2)
  - Respiratory disorder [Recovered/Resolved]
  - Product use issue [Unknown]

NARRATIVE: CASE EVENT DATE: 20051228
